FAERS Safety Report 6190754-9 (Version None)
Quarter: 2009Q2

REPORT INFORMATION
  Report Type: 
  Country: None (occurrence: None)
  Receive Date: 20090514
  Receipt Date: 20090508
  Transmission Date: 20091009
  Serious: Yes (Hospitalization)
  Sender: FDA-Public Use
  Company Number: BR-ABBOTT-09P-020-0572201-00

PATIENT
  Sex: Female

DRUGS (4)
  1. HUMIRA [Suspect]
     Indication: RHEUMATOID ARTHRITIS
     Route: 058
     Dates: start: 20071224
  2. HUMIRA [Suspect]
     Route: 058
     Dates: start: 20090401
  3. LEFLUNOMIDE [Concomitant]
     Indication: DRUG USE FOR UNKNOWN INDICATION
  4. UNKNOWN MAGISTRAL FORMULA [Concomitant]
     Indication: DRUG USE FOR UNKNOWN INDICATION

REACTIONS (6)
  - DERMATITIS ALLERGIC [None]
  - HERPES ZOSTER [None]
  - INCORRECT DRUG ADMINISTRATION DURATION [None]
  - NEPHRITIS [None]
  - SELF-MEDICATION [None]
  - WOUND [None]
